FAERS Safety Report 20693623 (Version 5)
Quarter: 2022Q2

REPORT INFORMATION
  Report Type: Report from Study
  Country: BE (occurrence: BE)
  Receive Date: 20220411
  Receipt Date: 20220504
  Transmission Date: 20220721
  Serious: Yes (Death, Hospitalization, Other)
  Sender: FDA-Public Use
  Company Number: BE-ABBVIE-22K-013-4351230-00

PATIENT
  Sex: Male
  Weight: 74 kg

DRUGS (11)
  1. CARBIDOPA\LEVODOPA [Suspect]
     Active Substance: CARBIDOPA\LEVODOPA
     Indication: Parkinson^s disease
     Route: 050
     Dates: start: 20201130
  2. CARBIDOPA\LEVODOPA [Suspect]
     Active Substance: CARBIDOPA\LEVODOPA
     Dosage: MD 9.5 ML; CD 4.0 ML/HR DURING 16 HOURS; ED 1.5 ML
     Route: 050
     Dates: start: 20220209, end: 20220316
  3. CARBIDOPA\LEVODOPA [Suspect]
     Active Substance: CARBIDOPA\LEVODOPA
     Dosage: MD 10.5 ML; CD 4.0 ML/HR DURING 16 HOURS; ED 1.5 ML
     Route: 050
     Dates: start: 20220316, end: 20220429
  4. CARBIDOPA\LEVODOPA [Suspect]
     Active Substance: CARBIDOPA\LEVODOPA
     Dosage: MD 10.5 ML; CD 4.3 ML/HR DURING 16 HOURS; ED 1.5 ML
     Route: 050
     Dates: start: 20220429
  5. BENSERAZIDE\LEVODOPA [Concomitant]
     Active Substance: BENSERAZIDE\LEVODOPA
     Indication: Parkinson^s disease
     Dosage: 250 MG, 1.5 TABLET
     Route: 048
  6. BENSERAZIDE\LEVODOPA [Concomitant]
     Active Substance: BENSERAZIDE\LEVODOPA
     Dosage: 125 MG, 2 TABLETS
     Route: 048
  7. BENSERAZIDE\LEVODOPA [Concomitant]
     Active Substance: BENSERAZIDE\LEVODOPA
     Route: 048
  8. SIMVASTATIN [Concomitant]
     Active Substance: SIMVASTATIN
     Indication: Blood cholesterol
     Dosage: 20 MG, 1 TABLET
     Route: 048
  9. FLUDROCORTISONE [Concomitant]
     Active Substance: FLUDROCORTISONE
     Indication: Hypotension
     Dosage: 0.05 MG, 1 TABLET
     Route: 048
  10. REMERGON [Concomitant]
     Active Substance: MIRTAZAPINE
     Indication: Antidepressant therapy
     Dosage: 15 MG, 1 TABLET
     Route: 048
  11. BENSERAZIDE\LEVODOPA [Concomitant]
     Active Substance: BENSERAZIDE\LEVODOPA
     Indication: Product used for unknown indication
     Dosage: DISPERSIBLE?AT 7:00 HOURS

REACTIONS (8)
  - Death [Fatal]
  - Altered state of consciousness [Unknown]
  - Pneumonia aspiration [Unknown]
  - Device use issue [Recovered/Resolved]
  - Wound complication [Unknown]
  - Hypotension [Unknown]
  - Stoma site discharge [Unknown]
  - Stoma site infection [Unknown]

NARRATIVE: CASE EVENT DATE: 20220406
